FAERS Safety Report 25546364 (Version 2)
Quarter: 2025Q3

REPORT INFORMATION
  Report Type: Spontaneous
  Country: US (occurrence: US)
  Receive Date: 20250713
  Receipt Date: 20250721
  Transmission Date: 20251020
  Serious: Yes (Other)
  Sender: DR REDDYS
  Company Number: US-MLMSERVICE-20250630-PI559829-00246-1

PATIENT
  Sex: Male

DRUGS (16)
  1. OLANZAPINE [Suspect]
     Active Substance: OLANZAPINE
     Indication: Schizophrenia
     Route: 048
  2. OLANZAPINE [Suspect]
     Active Substance: OLANZAPINE
     Dosage: 10 MG QHS??THERAPY START DATE: -MAR-2015
     Dates: end: 201503
  3. OLANZAPINE [Suspect]
     Active Substance: OLANZAPINE
     Dosage: 20 MG QHS
     Dates: start: 201505, end: 201507
  4. OLANZAPINE [Suspect]
     Active Substance: OLANZAPINE
     Dosage: 30 MG QHS DOSE INCREASED FOR EFFICACY
     Dates: start: 201507, end: 202012
  5. OLANZAPINE [Suspect]
     Active Substance: OLANZAPINE
     Dosage: 30 MG QHS
     Dates: start: 202108
  6. OLANZAPINE [Suspect]
     Active Substance: OLANZAPINE
     Dates: start: 202204, end: 202205
  7. OLANZAPINE [Suspect]
     Active Substance: OLANZAPINE
     Dates: start: 202205, end: 202212
  8. OLANZAPINE [Suspect]
     Active Substance: OLANZAPINE
     Dosage: 30 MG QHS
     Dates: start: 202212, end: 202304
  9. OLANZAPINE [Suspect]
     Active Substance: OLANZAPINE
     Dosage: 15 MG QHS
     Dates: start: 202304, end: 202306
  10. OLANZAPINE [Suspect]
     Active Substance: OLANZAPINE
     Dates: start: 202308
  11. METFORMIN [Suspect]
     Active Substance: METFORMIN HYDROCHLORIDE
     Indication: Weight decreased
     Dates: end: 2017
  12. METFORMIN [Suspect]
     Active Substance: METFORMIN HYDROCHLORIDE
  13. OLANZAPINE\SAMIDORPHAN [Suspect]
     Active Substance: OLANZAPINE\SAMIDORPHAN
     Indication: Schizophrenia
     Dosage: COMBINATION OLANZAPINE 15MG/SAMIDORPHAN10MG QHS??THERAPY START DATE: -MAY-2022
     Dates: end: 202212
  14. OLANZAPINE\SAMIDORPHAN [Suspect]
     Active Substance: OLANZAPINE\SAMIDORPHAN
     Dosage: COMBINATION OLANZAPINE 15MG/SAMIDORPHAN10MG QHS
     Dates: start: 202304, end: 202306
  15. QUETIAPINE [Concomitant]
     Active Substance: QUETIAPINE
     Indication: Schizophrenia
     Dosage: 200 MG QHS
     Dates: start: 201503, end: 201503
  16. PALIPERIDONE [Concomitant]
     Active Substance: PALIPERIDONE
     Indication: Schizophrenia
     Dates: start: 202012

REACTIONS (9)
  - Weight increased [Recovering/Resolving]
  - Condition aggravated [Recovering/Resolving]
  - Blood cholesterol increased [Recovered/Resolved]
  - Blood triglycerides increased [Recovered/Resolved]
  - Glucose tolerance impaired [Unknown]
  - Sleep apnoea syndrome [Unknown]
  - Hypertension [Unknown]
  - Treatment noncompliance [Unknown]
  - Drug ineffective for unapproved indication [Unknown]

NARRATIVE: CASE EVENT DATE: 20150101
